FAERS Safety Report 5851367-9 (Version None)
Quarter: 2008Q3

REPORT INFORMATION
  Report Type: 
  Country: None (occurrence: None)
  Receive Date: 20080820
  Receipt Date: 20080814
  Transmission Date: 20090109
  Serious: Yes (Death)
  Sender: FDA-Public Use
  Company Number: NZ-MERCK-0808NZL00012

PATIENT
  Age: 79 Year
  Sex: Male

DRUGS (1)
  1. ZOCOR [Suspect]
     Route: 048
     Dates: end: 20080101

REACTIONS (3)
  - ABNORMAL DREAMS [None]
  - DEATH [None]
  - TREATMENT NONCOMPLIANCE [None]
